FAERS Safety Report 15882937 (Version 1)
Quarter: 2019Q1

REPORT INFORMATION
  Report Type: Report from Study
  Country: IL (occurrence: IL)
  Receive Date: 20190129
  Receipt Date: 20190129
  Transmission Date: 20190417
  Serious: Yes (Hospitalization)
  Sender: FDA-Public Use
  Company Number: IL-SA-2019SA019887

PATIENT
  Age: 79 Year
  Sex: Male

DRUGS (1)
  1. INSULIN GLARGINE/LIXISENATIDE [Suspect]
     Active Substance: INSULIN GLARGINE\LIXISENATIDE
     Dosage: 25 DOSE STEPS ONCE DAILY
     Route: 058
     Dates: start: 20181206, end: 20181221

REACTIONS (1)
  - Disease progression [Not Recovered/Not Resolved]
